FAERS Safety Report 4878594-1 (Version None)
Quarter: 2006Q1

REPORT INFORMATION
  Report Type: 
  Country: None (occurrence: None)
  Receive Date: 20060110
  Receipt Date: 20060110
  Transmission Date: 20060701
  Serious: Yes (Other)
  Sender: FDA-Public Use
  Company Number: None

PATIENT
  Age: 49 Year
  Sex: Female
  Weight: 72.5755 kg

DRUGS (1)
  1. CORTEF [Suspect]
     Indication: BLOOD CORTISOL DECREASED
     Dosage: 5MG   2 PER DAY  PO  1.5 DAYS
     Route: 048
     Dates: start: 20051219, end: 20051220

REACTIONS (7)
  - BALANCE DISORDER [None]
  - COORDINATION ABNORMAL [None]
  - DISTURBANCE IN ATTENTION [None]
  - DIZZINESS [None]
  - NAUSEA [None]
  - PAIN [None]
  - VERTIGO [None]
